FAERS Safety Report 7797009-7 (Version None)
Quarter: 2011Q4

REPORT INFORMATION
  Report Type: 
  Country: None (occurrence: None)
  Receive Date: 20111005
  Receipt Date: 20110929
  Transmission Date: 20120403
  Serious: Yes (Death)
  Sender: FDA-Public Use
  Company Number: US-SANOFI-AVENTIS-2011SA063876

PATIENT
  Age: 69 Year
  Sex: Male

DRUGS (5)
  1. JEVTANA KIT [Suspect]
     Indication: PROSTATE CANCER
     Route: 041
     Dates: start: 20101115, end: 20101115
  2. JEVTANA KIT [Suspect]
     Route: 041
     Dates: start: 20110105, end: 20110105
  3. NEUPOGEN [Concomitant]
     Dates: start: 20101208, end: 20101208
  4. NEUPOGEN [Concomitant]
     Dates: start: 20110105, end: 20110105
  5. JEVTANA KIT [Suspect]
     Route: 041
     Dates: start: 20101208, end: 20101208

REACTIONS (1)
  - ROAD TRAFFIC ACCIDENT [None]
